FAERS Safety Report 5309226-6 (Version None)
Quarter: 2007Q2

REPORT INFORMATION
  Report Type: 
  Country: None (occurrence: None)
  Receive Date: 20070423
  Receipt Date: 20070415
  Transmission Date: 20071010
  Serious: Yes (Other)
  Sender: FDA-Public Use
  Company Number: 2007SP007162

PATIENT
  Sex: Female

DRUGS (4)
  1. BETAMETHASONE [Suspect]
     Indication: SINUSITIS
     Dosage: 4 MG; QD; PO
     Route: 048
     Dates: start: 20070403, end: 20070412
  2. BIOCALYPTOL (CON.) [Concomitant]
  3. ROVAMYCINE (CON.) [Concomitant]
  4. LOMAC (CON.) [Concomitant]

REACTIONS (3)
  - ASTHENIA [None]
  - TREMOR [None]
  - VERTIGO [None]
